FAERS Safety Report 13426861 (Version 1)
Quarter: 2017Q2

REPORT INFORMATION
  Report Type: Spontaneous
  Country: US (occurrence: US)
  Receive Date: 20170411
  Receipt Date: 20170411
  Transmission Date: 20170830
  Serious: Yes (Disabling)
  Sender: FDA-Public Use
  Company Number: None

PATIENT
  Age: 29 Year
  Sex: Male
  Weight: 85.5 kg

DRUGS (9)
  1. CALCIUM [Concomitant]
     Active Substance: CALCIUM
  2. MULTI VITAMIN [Concomitant]
     Active Substance: VITAMINS
  3. RESERVASTROL [Concomitant]
  4. MAGNESIUM [Concomitant]
     Active Substance: MAGNESIUM
  5. TRIBULUS TERSTERIS [Concomitant]
  6. TUMERIC [Concomitant]
     Active Substance: HERBALS\TURMERIC
  7. FISH OILS [Concomitant]
  8. FINASTERIDE. [Suspect]
     Active Substance: FINASTERIDE
     Indication: ALOPECIA
  9. L-GLUTAMINE /00503401/ [Concomitant]
     Active Substance: GLUTAMINE

REACTIONS (3)
  - Sexual dysfunction [None]
  - Physical examination abnormal [None]
  - Nervous system disorder [None]

NARRATIVE: CASE EVENT DATE: 20151223
